FAERS Safety Report 7304726-1 (Version None)
Quarter: 2011Q1

REPORT INFORMATION
  Report Type: 
  Country: None (occurrence: None)
  Receive Date: 20110222
  Receipt Date: 20110219
  Transmission Date: 20110831
  Serious: Yes (Other)
  Sender: FDA-Public Use
  Company Number: US-PFIZER INC-2011036781

PATIENT
  Sex: Female
  Weight: 83.9 kg

DRUGS (1)
  1. ZOLOFT [Suspect]
     Indication: DEPRESSION
     Dosage: 100 MG, 2X/DAY
     Route: 048

REACTIONS (4)
  - TREMOR [None]
  - INSOMNIA [None]
  - ABNORMAL BEHAVIOUR [None]
  - SUICIDAL IDEATION [None]
